FAERS Safety Report 9110040 (Version 1)
Quarter: 2013Q1

REPORT INFORMATION
  Report Type: Report from Study
  Country: US (occurrence: US)
  Receive Date: 20130222
  Receipt Date: 20130222
  Transmission Date: 20140127
  Serious: Yes (Other)
  Sender: FDA-Public Use
  Company Number: US-ACTELION-A-US2013-77486

PATIENT
  Age: 81 Year
  Sex: Male

DRUGS (4)
  1. TRACLEER [Suspect]
     Indication: PULMONARY ARTERIAL HYPERTENSION
     Dosage: UNK
     Route: 048
  2. ASPIRIN [Concomitant]
     Dosage: 62.5 MG, BID
     Dates: start: 201201
  3. ASPIRIN [Concomitant]
     Dosage: 125 MG, BID
     Route: 048
     Dates: start: 201201
  4. LASIX [Concomitant]

REACTIONS (3)
  - Gallbladder operation [Unknown]
  - Nasal congestion [Unknown]
  - Dyspnoea [Unknown]
